FAERS Safety Report 18755754 (Version 1)
Quarter: 2021Q1

REPORT INFORMATION
  Report Type: Report from Study
  Country: US (occurrence: US)
  Receive Date: 20210119
  Receipt Date: 20210119
  Transmission Date: 20210419
  Serious: Yes (Other)
  Sender: FDA-Public Use
  Company Number: US-SHIRE-US201934462

PATIENT
  Age: 62 Year
  Sex: Female

DRUGS (3)
  1. 643 (LANADELUMAB) [Suspect]
     Active Substance: LANADELUMAB
     Indication: PRODUCT USED FOR UNKNOWN INDICATION
     Dosage: 300 MILLILITER
     Route: 065
     Dates: start: 20181116
  2. FIRAZYR [Suspect]
     Active Substance: ICATIBANT ACETATE
     Indication: PRODUCT USED FOR UNKNOWN INDICATION
     Dosage: 30 MILLILITER, AS REQ^D
     Route: 065
     Dates: start: 20111026
  3. FIRAZYR [Suspect]
     Active Substance: ICATIBANT ACETATE
     Indication: PRODUCT USED FOR UNKNOWN INDICATION
     Dosage: 30 MILLILITER, AS REQ^D
     Route: 065
     Dates: start: 20111026

REACTIONS (7)
  - Hereditary angioedema [Recovering/Resolving]
  - Product dose omission issue [Recovering/Resolving]
  - Adverse drug reaction [Unknown]
  - Seizure [Unknown]
  - Illness [Unknown]
  - Back pain [Unknown]
  - Nasopharyngitis [Recovering/Resolving]

NARRATIVE: CASE EVENT DATE: 20191027
